FAERS Safety Report 5650452-4 (Version None)
Quarter: 2008Q1

REPORT INFORMATION
  Report Type: 
  Country: None (occurrence: None)
  Receive Date: 20080305
  Receipt Date: 20080225
  Transmission Date: 20080703
  Serious: Yes (Other)
  Sender: FDA-Public Use
  Company Number: GB-JNJFOC-20080206376

PATIENT
  Sex: Female

DRUGS (1)
  1. REMICADE [Suspect]
     Indication: DRUG USE FOR UNKNOWN INDICATION
     Dosage: 3RD INFUSION = 19-DEC-2007
     Route: 042

REACTIONS (3)
  - COUGH [None]
  - LETHARGY [None]
  - WHITE BLOOD CELL COUNT DECREASED [None]
